FAERS Safety Report 12225874 (Version 1)
Quarter: 2016Q1

REPORT INFORMATION
  Report Type: Spontaneous
  Country: US (occurrence: None)
  Receive Date: 20160330
  Receipt Date: 20160330
  Transmission Date: 20160526
  Serious: Yes (Hospitalization)
  Sender: FDA-Public Use
  Company Number: None

PATIENT
  Age: 45 Year
  Sex: Female
  Weight: 63.5 kg

DRUGS (1)
  1. CHANTIX [Suspect]
     Active Substance: VARENICLINE TARTRATE
     Indication: SMOKING CESSATION THERAPY
     Route: 048
     Dates: start: 20150604, end: 20150706

REACTIONS (8)
  - Peripheral swelling [None]
  - Joint swelling [None]
  - Gastrooesophageal reflux disease [None]
  - Tinnitus [None]
  - Dyspnoea [None]
  - Vertigo [None]
  - Dizziness [None]
  - Sensation of foreign body [None]

NARRATIVE: CASE EVENT DATE: 20150709
